FAERS Safety Report 11181399 (Version 1)
Quarter: 2015Q2

REPORT INFORMATION
  Report Type: Spontaneous
  Country: US (occurrence: US)
  Receive Date: 20150611
  Receipt Date: 20150611
  Transmission Date: 20150821
  Serious: Yes (Hospitalization)
  Sender: FDA-Public Use
  Company Number: US-SA-2015SA080339

PATIENT
  Age: 58 Year
  Sex: Male

DRUGS (2)
  1. LANTUS [Suspect]
     Active Substance: INSULIN GLARGINE
     Indication: TYPE 2 DIABETES MELLITUS
     Dosage: VIALS DOSE:70 UNIT(S)
     Route: 065
     Dates: end: 201505
  2. ICY HOT [Concomitant]
     Active Substance: MENTHOL\METHYL SALICYLATE

REACTIONS (3)
  - Pain in extremity [Recovered/Resolved]
  - Myocardial infarction [Recovered/Resolved]
  - Atrioventricular block [Recovered/Resolved]
